FAERS Safety Report 9755978 (Version 1)
Quarter: 2013Q4

REPORT INFORMATION
  Report Type: Spontaneous
  Country: US (occurrence: US)
  Receive Date: 20131213
  Receipt Date: 20131213
  Transmission Date: 20140711
  Serious: Yes (Hospitalization)
  Sender: FDA-Public Use
  Company Number: US-GLAXOSMITHKLINE-A1052661A

PATIENT
  Age: 4 Month
  Sex: Female

DRUGS (6)
  1. FLOVENT [Suspect]
     Indication: LUNG DISORDER
     Dosage: 2PUFF TWICE PER DAY
     Route: 055
     Dates: start: 201102
  2. ACID REFLUX MED. [Concomitant]
  3. ALBUTEROL [Concomitant]
  4. ANTIBIOTIC [Concomitant]
  5. STEROID [Concomitant]
  6. OXYGEN [Concomitant]

REACTIONS (4)
  - Pneumonia [Recovering/Resolving]
  - Nasopharyngitis [Recovering/Resolving]
  - Cough [Recovering/Resolving]
  - Drug administration error [Unknown]
